FAERS Safety Report 6987650-3 (Version None)
Quarter: 2010Q3

REPORT INFORMATION
  Report Type: 
  Country: None (occurrence: None)
  Receive Date: 20100914
  Receipt Date: 20100901
  Transmission Date: 20110219
  Serious: Yes (Other)
  Sender: FDA-Public Use
  Company Number: ZYD-10-AE-222

PATIENT
  Age: 49 Year
  Sex: Female

DRUGS (6)
  1. PAROXETINE HYDROCHLORIDE [Suspect]
     Indication: DEPRESSION
     Dosage: 20MG - TID - ORAL
     Route: 048
     Dates: end: 20100630
  2. BUSPIRONE HCL [Concomitant]
  3. CARBAMAZEPINE (EPITOL) [Concomitant]
  4. TRAZODONE HCL [Concomitant]
  5. HYDROXYZINE (VISTARILL) [Concomitant]
  6. THYROXINE (SYNTHROID) [Concomitant]

REACTIONS (14)
  - CHILLS [None]
  - DEPRESSION [None]
  - DRUG EFFECT DECREASED [None]
  - DRUG WITHDRAWAL SYNDROME [None]
  - FEELING COLD [None]
  - FEELING DRUNK [None]
  - HYPERHIDROSIS [None]
  - HYPERSOMNIA [None]
  - ILL-DEFINED DISORDER [None]
  - NAUSEA [None]
  - PRESYNCOPE [None]
  - URINARY TRACT INFECTION [None]
  - VERTIGO [None]
  - VOMITING [None]
